FAERS Safety Report 18620122 (Version 1)
Quarter: 2020Q4

REPORT INFORMATION
  Report Type: Spontaneous
  Country: US (occurrence: US)
  Receive Date: 20201215
  Receipt Date: 20201215
  Transmission Date: 20210114
  Serious: No
  Sender: FDA-Public Use
  Company Number: US-PERRIGO-20US013799

PATIENT
  Age: 68 Year
  Sex: Female
  Weight: 88.44 kg

DRUGS (7)
  1. JARDIANCE [Concomitant]
     Active Substance: EMPAGLIFLOZIN
     Indication: DIABETES MELLITUS
     Dosage: UNKNOWN, UNKNOWN
     Route: 065
     Dates: start: 201903
  2. TIOCONAZOLE. [Suspect]
     Active Substance: TIOCONAZOLE
     Indication: VULVOVAGINAL MYCOTIC INFECTION
     Dosage: 300 MG, SINGLE
     Route: 067
     Dates: start: 20200922, end: 20200922
  3. TOUJEO [Concomitant]
     Active Substance: INSULIN GLARGINE
     Indication: DIABETES MELLITUS
     Dosage: UNKNOWN, UNKNOWN
     Route: 065
     Dates: start: 2015
  4. LISINOPRIL. [Concomitant]
     Active Substance: LISINOPRIL
     Indication: OFF LABEL USE
     Dosage: UNKNOWN, UNKNOWN
     Route: 048
     Dates: start: 2015
  5. IBUPROFEN. [Concomitant]
     Active Substance: IBUPROFEN
     Indication: SURGERY
     Dosage: 800 MG, BID
     Route: 048
     Dates: start: 20200904
  6. TRULICITY [Concomitant]
     Active Substance: DULAGLUTIDE
     Indication: DIABETES MELLITUS
     Dosage: UNKNOWN, WEEKLY
     Route: 065
     Dates: start: 2018
  7. METFORMIN [Concomitant]
     Active Substance: METFORMIN HYDROCHLORIDE
     Indication: DIABETES MELLITUS
     Dosage: 500 MG, DAILY
     Route: 065
     Dates: start: 2017

REACTIONS (2)
  - Vulvovaginal pain [Recovered/Resolved]
  - Vulvovaginal burning sensation [Recovered/Resolved]

NARRATIVE: CASE EVENT DATE: 20200922
